FAERS Safety Report 6294543-6 (Version None)
Quarter: 2009Q3

REPORT INFORMATION
  Report Type: 
  Country: None (occurrence: None)
  Receive Date: 20090803
  Receipt Date: 20090722
  Transmission Date: 20100115
  Serious: Yes (Death, Life-Threatening, Other)
  Sender: FDA-Public Use
  Company Number: JP-PFIZER INC-2009230828

PATIENT
  Age: 2 Year

DRUGS (6)
  1. SOLU-MEDROL [Suspect]
     Indication: ANGIOSARCOMA
     Dosage: 30 MG/KG, 1X/DAY
     Route: 042
     Dates: start: 20040513
  2. PREDNISOLONE AND PREDNISOLONE STEAGLATE [Suspect]
  3. VINCRISTINE [Suspect]
  4. ACTINOMYCIN D [Suspect]
  5. CYCLOPHOSPHAMIDE [Suspect]
  6. FUTHAN [Concomitant]
     Dosage: UNK
     Route: 042
     Dates: start: 20040511

REACTIONS (7)
  - ACUTE RESPIRATORY DISTRESS SYNDROME [None]
  - BLOOD PRESSURE DECREASED [None]
  - BRADYCARDIA [None]
  - HAEMORRHAGE INTRACRANIAL [None]
  - INTERSTITIAL LUNG DISEASE [None]
  - PNEUMOCYSTIS JIROVECI PNEUMONIA [None]
  - RESPIRATORY FAILURE [None]
